FAERS Safety Report 16726691 (Version 1)
Quarter: 2019Q3

REPORT INFORMATION
  Report Type: Report from Study
  Country: CA (occurrence: CA)
  Receive Date: 20190821
  Receipt Date: 20190821
  Transmission Date: 20191005
  Serious: Yes (Hospitalization)
  Sender: FDA-Public Use
  Company Number: CA-MYLANLABS-2019M1046270

PATIENT
  Sex: Male

DRUGS (7)
  1. SYNTHROID [Concomitant]
     Active Substance: LEVOTHYROXINE SODIUM
     Dosage: UNK
  2. VITAMIN D                          /00107901/ [Concomitant]
     Active Substance: ERGOCALCIFEROL
     Dosage: UNK
  3. ATIVAN [Concomitant]
     Active Substance: LORAZEPAM
     Dosage: 1 MILLIGRAM, HS
     Route: 048
  4. EPIVAL                             /00017001/ [Concomitant]
     Active Substance: DIAZEPAM
     Dosage: 1000 MILLIGRAM, HS
     Route: 048
  5. CLOZAPINE. [Suspect]
     Active Substance: CLOZAPINE
     Indication: SCHIZOAFFECTIVE DISORDER
     Dosage: 25 MILLIGRAM, BID
     Dates: start: 20190219, end: 20190502
  6. CLOZAPINE. [Suspect]
     Active Substance: CLOZAPINE
     Dosage: 100 MILLIGRAM, HS
     Dates: start: 2019
  7. QUETIAPINE. [Concomitant]
     Active Substance: QUETIAPINE
     Dosage: 25 MILLIGRAM, BID

REACTIONS (4)
  - Confusional state [Unknown]
  - Toxicity to various agents [Unknown]
  - Colitis [Unknown]
  - Delirium [Unknown]

NARRATIVE: CASE EVENT DATE: 2019
